FAERS Safety Report 4710743-8 (Version None)
Quarter: 2005Q3

REPORT INFORMATION
  Report Type: 
  Country: None (occurrence: None)
  Receive Date: 20050711
  Receipt Date: 20050615
  Transmission Date: 20060218
  Serious: Yes (Disabling, Other)
  Sender: FDA-Public Use
  Company Number: JP-MERCK-0506USA02836

PATIENT
  Age: 5 Year
  Sex: Male

DRUGS (3)
  1. COSMEGEN [Suspect]
     Indication: AESTHESIONEUROBLASTOMA
     Route: 042
     Dates: start: 20041012, end: 20041012
  2. ENDOXAN [Suspect]
     Indication: AESTHESIONEUROBLASTOMA
     Route: 042
     Dates: start: 20041012, end: 20041012
  3. ONCOVIN [Suspect]
     Indication: AESTHESIONEUROBLASTOMA
     Route: 042
     Dates: start: 20041012, end: 20041012

REACTIONS (2)
  - CONVULSION [None]
  - INAPPROPRIATE ANTIDIURETIC HORMONE SECRETION [None]
